FAERS Safety Report 5741285-9 (Version None)
Quarter: 2008Q2

REPORT INFORMATION
  Report Type: 
  Country: None (occurrence: None)
  Receive Date: 20080514
  Receipt Date: 20080507
  Transmission Date: 20081010
  Serious: Yes (Other)
  Sender: FDA-Public Use
  Company Number: 2008SP008603

PATIENT
  Age: 50 Year
  Sex: Female
  Weight: 84.369 kg

DRUGS (2)
  1. PEG-INTRON [Suspect]
     Indication: HEPATITIS C
     Dosage: UNK; SC
     Route: 058
     Dates: start: 20080227
  2. REBETOL [Suspect]
     Indication: HEPATITIS C
     Dosage: UNK; PO
     Route: 048
     Dates: start: 20080227

REACTIONS (3)
  - UNEVALUABLE EVENT [None]
  - VOMITING [None]
  - WEIGHT DECREASED [None]
